FAERS Safety Report 19239965 (Version 1)
Quarter: 2021Q2

REPORT INFORMATION
  Report Type: Spontaneous
  Country: US (occurrence: US)
  Receive Date: 20210510
  Receipt Date: 20210510
  Transmission Date: 20210717
  Serious: Yes (Other)
  Sender: FDA-Public Use
  Company Number: US-LUNDBECK-DKLU3032779

PATIENT
  Age: 2 Year
  Sex: Male

DRUGS (1)
  1. SABRIL [Suspect]
     Active Substance: VIGABATRIN
     Indication: EPILEPSY
     Route: 048
     Dates: start: 202009

REACTIONS (3)
  - Product dose omission issue [Unknown]
  - Seizure [Unknown]
  - Malaise [Unknown]

NARRATIVE: CASE EVENT DATE: 20210328
